FAERS Safety Report 8915994 (Version 1)
Quarter: 2012Q4

REPORT INFORMATION
  Report Type: 
  Country: US (occurrence: US)
  Receive Date: 20121119
  Receipt Date: 20121119
  Transmission Date: 20130627
  Serious: Yes (Hospitalization)
  Sender: FDA-Public Use
  Company Number: US-GLAXOSMITHKLINE-A1001321A

PATIENT
  Age: 60 Year
  Sex: Male

DRUGS (4)
  1. VENTOLIN [Suspect]
     Indication: DYSPNOEA
     Dosage: 4PUFF Six times per day
     Route: 055
     Dates: start: 201012
  2. QVAR [Concomitant]
  3. ADVAIR [Concomitant]
  4. PROAIR HFA [Concomitant]

REACTIONS (5)
  - Prescribed overdose [Unknown]
  - Dyspnoea [Unknown]
  - Hyperventilation [Unknown]
  - Mobility decreased [Unknown]
  - Middle insomnia [Unknown]
